FAERS Safety Report 10099431 (Version 1)
Quarter: 2014Q2

REPORT INFORMATION
  Report Type: Spontaneous
  Country: US (occurrence: US)
  Receive Date: 20140423
  Receipt Date: 20140423
  Transmission Date: 20141212
  Serious: Yes (Other)
  Sender: FDA-Public Use
  Company Number: US-GILEAD-2014-0100249

PATIENT
  Sex: Male
  Weight: 82.99 kg

DRUGS (5)
  1. LETAIRIS [Suspect]
     Indication: PULMONARY HYPERTENSION
     Dosage: 10 MG, QD
     Route: 048
     Dates: end: 2013
  2. REVATIO [Suspect]
     Dosage: UNK
  3. FUROSEMIDE [Concomitant]
  4. METOPROLOL [Concomitant]
  5. SIMVASTATIN [Concomitant]

REACTIONS (2)
  - Knee operation [Unknown]
  - Shoulder operation [Unknown]
